FAERS Safety Report 21561652 (Version 1)
Quarter: 2022Q4

REPORT INFORMATION
  Report Type: Spontaneous
  Country: US (occurrence: US)
  Receive Date: 20221107
  Receipt Date: 20221107
  Transmission Date: 20230113
  Serious: No
  Sender: FDA-Public Use
  Company Number: US-BRISTOL-MYERS SQUIBB COMPANY-2022-132090

PATIENT
  Age: 62 Year
  Sex: Male

DRUGS (4)
  1. AZACITIDINE [Suspect]
     Active Substance: AZACITIDINE
     Indication: Acute myeloid leukaemia
     Dosage: FREQ: QD ON DAYS 1-14 OF EACH 28-DAY TREATMENT CYCLE
     Route: 048
  2. AZACITIDINE [Suspect]
     Active Substance: AZACITIDINE
     Dosage: FREQ: QD ON DAYS 1-14 OF EACH 28-DAY TREATMENT CYCLE
     Route: 048
  3. MIDOSTAURIN [Concomitant]
     Active Substance: MIDOSTAURIN
     Indication: Product used for unknown indication
     Dosage: COMPLETED 2018
     Route: 065
  4. CYTARABINE [Concomitant]
     Active Substance: CYTARABINE
     Indication: Product used for unknown indication
     Route: 065

REACTIONS (2)
  - Gastrointestinal disorder [Unknown]
  - Fatigue [Not Recovered/Not Resolved]
